FAERS Safety Report 16321089 (Version 1)
Quarter: 2019Q2

REPORT INFORMATION
  Report Type: Report from Study
  Country: US (occurrence: US)
  Receive Date: 20190516
  Receipt Date: 20190516
  Transmission Date: 20190711
  Serious: Yes (Other)
  Sender: FDA-Public Use
  Company Number: US-GILEAD-2019-0408292

PATIENT
  Age: 59 Year
  Sex: Female

DRUGS (5)
  1. AMBRISENTAN [Suspect]
     Active Substance: AMBRISENTAN
     Indication: PRODUCT USED FOR UNKNOWN INDICATION
     Dosage: 10 MG, QD
     Route: 048
     Dates: start: 20161123
  2. POTASSIUM [Concomitant]
     Active Substance: POTASSIUM
  3. WARFARIN [Concomitant]
     Active Substance: WARFARIN
  4. DILTIAZEM. [Concomitant]
     Active Substance: DILTIAZEM
  5. ADEMPAS [Concomitant]
     Active Substance: RIOCIGUAT
     Dosage: UNK

REACTIONS (6)
  - Gastric bypass [Unknown]
  - Muscle spasms [Not Recovered/Not Resolved]
  - Weight increased [Not Recovered/Not Resolved]
  - Pericardial effusion [Not Recovered/Not Resolved]
  - Dyspnoea [Not Recovered/Not Resolved]
  - Fluid retention [Not Recovered/Not Resolved]

NARRATIVE: CASE EVENT DATE: 201704
